FAERS Safety Report 18505865 (Version 1)
Quarter: 2020Q4

REPORT INFORMATION
  Report Type: Spontaneous
  Country: US (occurrence: US)
  Receive Date: 20201116
  Receipt Date: 20201116
  Transmission Date: 20210114
  Serious: Yes (Other)
  Sender: FDA-Public Use
  Company Number: US-ENDO PHARMACEUTICALS INC-2020-007327

PATIENT
  Age: 10 Month
  Sex: Male

DRUGS (2)
  1. TESTIM [Suspect]
     Active Substance: TESTOSTERONE
     Indication: PRIMARY HYPOGONADISM
     Dosage: 150 MG/ML, DAILY
     Route: 061
     Dates: start: 20060206
  2. TESTIM [Suspect]
     Active Substance: TESTOSTERONE
     Dosage: 250 MG/ML, DAILY
     Route: 061
     Dates: start: 20060410

REACTIONS (2)
  - Precocious puberty [Recovered/Resolved]
  - Accidental exposure to product by child [Recovered/Resolved]

NARRATIVE: CASE EVENT DATE: 2006
